FAERS Safety Report 22173417 (Version 1)
Quarter: 2023Q2

REPORT INFORMATION
  Report Type: Spontaneous
  Country: JP (occurrence: JP)
  Receive Date: 20230404
  Receipt Date: 20230404
  Transmission Date: 20230722
  Serious: Yes (Other)
  Sender: FDA-Public Use
  Company Number: JP-BAYER-2023A038676

PATIENT
  Age: 66 Year
  Sex: Male

DRUGS (1)
  1. STIVARGA [Suspect]
     Active Substance: REGORAFENIB
     Indication: Rectal cancer
     Dosage: UNK
     Route: 048

REACTIONS (6)
  - Metastases to liver [None]
  - Metastases to bone [None]
  - Bone pain [None]
  - Metastasis [None]
  - Neuropathy peripheral [None]
  - Groin pain [None]
